FAERS Safety Report 9973428 (Version 3)
Quarter: 2014Q2

REPORT INFORMATION
  Report Type: Spontaneous
  Country: US (occurrence: US)
  Receive Date: 20140306
  Receipt Date: 20140410
  Transmission Date: 20141212
  Serious: No
  Sender: FDA-Public Use
  Company Number: US-PFIZER INC-2014060182

PATIENT
  Age: 78 Year
  Sex: Male
  Weight: 54.42 kg

DRUGS (1)
  1. VIAGRA [Suspect]
     Indication: ERECTILE DYSFUNCTION
     Dosage: UNK

REACTIONS (2)
  - Throat irritation [Unknown]
  - Gastrooesophageal reflux disease [Unknown]
